FAERS Safety Report 6620209-6 (Version None)
Quarter: 2010Q1

REPORT INFORMATION
  Report Type: 
  Country: None (occurrence: None)
  Receive Date: 20100309
  Receipt Date: 20100205
  Transmission Date: 20100710
  Serious: Yes (Other)
  Sender: FDA-Public Use
  Company Number: US-SP-2010-00933

PATIENT
  Sex: Male

DRUGS (3)
  1. THERACYS [Suspect]
     Indication: BLADDER CANCER
     Dosage: NOT REPORTED
     Route: 065
     Dates: start: 20100119, end: 20100119
  2. TRICOR [Concomitant]
  3. SYNTHROID [Concomitant]

REACTIONS (4)
  - BALANITIS [None]
  - LYMPHADENOPATHY [None]
  - MICTURITION DISORDER [None]
  - URETHRAL MEATUS STENOSIS [None]
